FAERS Safety Report 5050670-2 (Version None)
Quarter: 2006Q3

REPORT INFORMATION
  Report Type: 
  Country: None (occurrence: None)
  Receive Date: 20060710
  Receipt Date: 20060627
  Transmission Date: 20061208
  Serious: Yes (Hospitalization)
  Sender: FDA-Public Use
  Company Number: 2006067876

PATIENT
  Age: 82 Year
  Sex: Female

DRUGS (1)
  1. UNASYN [Suspect]
     Indication: DRUG USE FOR UNKNOWN INDICATION
     Dosage: 3 GRAM, INTRAVENOUS
     Route: 042
     Dates: start: 20060512, end: 20060516

REACTIONS (4)
  - HEPATIC FAILURE [None]
  - PLATELET COUNT DECREASED [None]
  - PYREXIA [None]
  - WHITE BLOOD CELL COUNT INCREASED [None]
